FAERS Safety Report 5726443-1 (Version None)
Quarter: 2008Q2

REPORT INFORMATION
  Report Type: 
  Country: None (occurrence: None)
  Receive Date: 20080502
  Receipt Date: 20080424
  Transmission Date: 20081010
  Serious: Yes (Hospitalization)
  Sender: FDA-Public Use
  Company Number: B0516083A

PATIENT
  Age: 27 Year
  Sex: Male

DRUGS (2)
  1. DEROXAT [Suspect]
     Indication: MAJOR DEPRESSION
     Dosage: 1TAB IN THE MORNING
     Route: 048
     Dates: start: 20080301
  2. ATHYMIL [Concomitant]
     Indication: MAJOR DEPRESSION
     Dosage: 30MG AT NIGHT
     Route: 065

REACTIONS (6)
  - ATELECTASIS [None]
  - CHEST DISCOMFORT [None]
  - CHEST PAIN [None]
  - HAEMOPTYSIS [None]
  - PLEURAL EFFUSION [None]
  - RESPIRATORY DISORDER [None]
